FAERS Safety Report 16415754 (Version 4)
Quarter: 2020Q1

REPORT INFORMATION
  Report Type: Spontaneous
  Country: US (occurrence: US)
  Receive Date: 20190611
  Receipt Date: 20200110
  Transmission Date: 20200409
  Serious: Yes (Hospitalization, Other)
  Sender: FDA-Public Use
  Company Number: US-PFIZER INC-2019247915

PATIENT
  Age: 83 Year
  Sex: Female

DRUGS (2)
  1. BOSULIF [Suspect]
     Active Substance: BOSUTINIB MONOHYDRATE
     Indication: CHRONIC MYELOID LEUKAEMIA (IN REMISSION)
     Dosage: 500 MG, DAILY
     Route: 048
     Dates: start: 20180611
  2. BOSULIF [Suspect]
     Active Substance: BOSUTINIB MONOHYDRATE
     Dosage: 500 MG, DAILY
     Dates: start: 20190601, end: 20190609

REACTIONS (13)
  - Decreased appetite [Unknown]
  - Anaemia [Unknown]
  - Electrolyte imbalance [Unknown]
  - Pulmonary congestion [Unknown]
  - Urinary tract infection [Unknown]
  - Fatigue [Not Recovered/Not Resolved]
  - Dehydration [Unknown]
  - Full blood count decreased [Unknown]
  - Heart rate increased [Not Recovered/Not Resolved]
  - Herpes zoster [Unknown]
  - Diarrhoea [Recovered/Resolved]
  - Pulmonary oedema [Unknown]
  - Pneumonia [Unknown]
